FAERS Safety Report 7970594-8 (Version None)
Quarter: 2011Q4

REPORT INFORMATION
  Report Type: 
  Country: None (occurrence: None)
  Receive Date: 20111212
  Receipt Date: 20111202
  Transmission Date: 20120403
  Serious: Yes (Hospitalization)
  Sender: FDA-Public Use
  Company Number: JP-JNJFOC-20111202071

PATIENT
  Age: 4 Decade
  Sex: Male

DRUGS (3)
  1. METHOTREXATE [Suspect]
     Indication: PRODUCT USED FOR UNKNOWN INDICATION
     Route: 048
  2. REMICADE [Suspect]
     Indication: RHEUMATOID ARTHRITIS
     Route: 042
     Dates: start: 20101001
  3. REMICADE [Suspect]
     Route: 042
     Dates: start: 20101001

REACTIONS (1)
  - TUBERCULOSIS [None]
